FAERS Safety Report 4970801-X (Version None)
Quarter: 2006Q2

REPORT INFORMATION
  Report Type: 
  Country: None (occurrence: None)
  Receive Date: 20060412
  Receipt Date: 20060331
  Transmission Date: 20061013
  Serious: Yes (Other)
  Sender: FDA-Public Use
  Company Number: GB-ROCHE-442540

PATIENT
  Age: 26 Year
  Sex: Male

DRUGS (10)
  1. MYCOPHENOLATE MOFETIL [Suspect]
     Route: 065
  2. MYCOPHENOLATE MOFETIL [Suspect]
     Route: 065
  3. MYCOPHENOLATE MOFETIL [Suspect]
     Route: 065
  4. TACROLIMUS [Concomitant]
  5. METHYLPREDNISOLONE [Concomitant]
  6. CYCLOSPORINE [Concomitant]
  7. AZATHIOPRINE [Concomitant]
  8. NYSTATIN [Concomitant]
  9. ACYCLOVIR [Concomitant]
  10. CO-TRIMOXAZOLE [Concomitant]

REACTIONS (2)
  - NEUTROPHIL MORPHOLOGY ABNORMAL [None]
  - TRANSPLANT REJECTION [None]
